FAERS Safety Report 5067811-3 (Version None)
Quarter: 2006Q3

REPORT INFORMATION
  Report Type: 
  Country: None (occurrence: None)
  Receive Date: 20060802
  Receipt Date: 20060727
  Transmission Date: 20061208
  Serious: Yes (Hospitalization)
  Sender: FDA-Public Use
  Company Number: DE-GLAXOSMITHKLINE-D0050448A

PATIENT
  Age: 1 Week
  Sex: Male
  Weight: 2.4 kg

DRUGS (2)
  1. RETROVIR [Suspect]
     Indication: ANTIVIRAL PROPHYLAXIS
     Dosage: 1.5MG FOUR TIMES PER DAY
     Route: 042
     Dates: start: 20060529, end: 20060612
  2. RETROVIR [Concomitant]
     Dates: end: 20060529

REACTIONS (1)
  - HAEMATOCHEZIA [None]
